FAERS Safety Report 17902947 (Version 1)
Quarter: 2020Q2

REPORT INFORMATION
  Report Type: Spontaneous
  Country: ES (occurrence: ES)
  Receive Date: 20200617
  Receipt Date: 20200617
  Transmission Date: 20200714
  Serious: Yes (Hospitalization)
  Sender: FDA-Public Use
  Company Number: ES-INTERCEPT-PM2020001263

PATIENT
  Sex: Female

DRUGS (2)
  1. OCALIVA [Suspect]
     Active Substance: OBETICHOLIC ACID
     Indication: PRIMARY BILIARY CHOLANGITIS
     Dosage: 5 MG, QD
     Route: 048
     Dates: start: 20190617
  2. OCALIVA [Suspect]
     Active Substance: OBETICHOLIC ACID
     Dosage: 10 MG, 2X/WK
     Route: 048

REACTIONS (3)
  - Upper gastrointestinal haemorrhage [Recovered/Resolved]
  - Gastrointestinal angiodysplasia [Not Recovered/Not Resolved]
  - Electrocoagulation [Recovered/Resolved]

NARRATIVE: CASE EVENT DATE: 202005
